FAERS Safety Report 19122747 (Version 1)
Quarter: 2021Q2

REPORT INFORMATION
  Report Type: Spontaneous
  Country: US (occurrence: US)
  Receive Date: 20210412
  Receipt Date: 20210412
  Transmission Date: 20210717
  Serious: Yes (Hospitalization)
  Sender: FDA-Public Use
  Company Number: US-GW PHARMA-202104USGW01451

PATIENT

DRUGS (6)
  1. EPIDIOLEX [Suspect]
     Active Substance: CANNABIDIOL
     Dosage: 500 MILLIGRAM, BID
     Route: 048
  2. LAMICTAL [Concomitant]
     Active Substance: LAMOTRIGINE
     Indication: PRODUCT USED FOR UNKNOWN INDICATION
     Dosage: INITIAL DOSE UNKNOWN
     Route: 065
  3. CLONAZEPAM. [Concomitant]
     Active Substance: CLONAZEPAM
     Indication: PRODUCT USED FOR UNKNOWN INDICATION
     Dosage: INITIAL DOSE UNKNOWN
     Route: 065
  4. CLONAZEPAM. [Concomitant]
     Active Substance: CLONAZEPAM
     Dosage: ADJUSTED DUE TO SEIZURE)
     Route: 065
  5. LAMICTAL [Concomitant]
     Active Substance: LAMOTRIGINE
     Dosage: UNK, (ADJUSTED DUE TO SEIZURE)
     Route: 065
  6. EPIDIOLEX [Suspect]
     Active Substance: CANNABIDIOL
     Indication: EPILEPSY
     Dosage: 50 MILLIGRAM, BID
     Route: 048
     Dates: start: 202009

REACTIONS (3)
  - Seizure [Unknown]
  - Product use in unapproved indication [Unknown]
  - Drug screen positive [Unknown]

NARRATIVE: CASE EVENT DATE: 2021
